FAERS Safety Report 6725770-9 (Version None)
Quarter: 2010Q2

REPORT INFORMATION
  Report Type: 
  Country: None (occurrence: None)
  Receive Date: 20100513
  Receipt Date: 20100513
  Transmission Date: 20101027
  Serious: No
  Sender: FDA-Public Use
  Company Number: None

PATIENT
  Age: 34 Year
  Sex: Female
  Weight: 90.7194 kg

DRUGS (2)
  1. CLARITHROMYCIN [Suspect]
     Indication: EAR INFECTION
     Dosage: 500MG 2 TIMES DAILY PO
     Route: 048
     Dates: start: 20100510, end: 20100511
  2. CLARITHROMYCIN [Suspect]
     Indication: SINUSITIS
     Dosage: 500MG 2 TIMES DAILY PO
     Route: 048
     Dates: start: 20100510, end: 20100511

REACTIONS (1)
  - DYSGEUSIA [None]
